FAERS Safety Report 20257676 (Version 2)
Quarter: 2022Q1

REPORT INFORMATION
  Report Type: Spontaneous
  Country: US (occurrence: US)
  Receive Date: 20211230
  Receipt Date: 20220304
  Transmission Date: 20220423
  Serious: Yes (Death, Other)
  Sender: FDA-Public Use
  Company Number: US-BRISTOL-MYERS SQUIBB COMPANY-BMS-2021-143515

PATIENT
  Age: 88 Year
  Sex: Male

DRUGS (4)
  1. ELIQUIS [Suspect]
     Active Substance: APIXABAN
     Indication: Cerebrovascular accident prophylaxis
     Dosage: 2.5 MILLIGRAM, BID
     Route: 048
     Dates: start: 20190726
  2. ENTRESTO [Concomitant]
     Active Substance: SACUBITRIL\VALSARTAN
     Indication: Cardiac failure
     Dosage: 49/51, BID
     Route: 048
     Dates: start: 20191130
  3. BUMEX [Concomitant]
     Active Substance: BUMETANIDE
     Indication: Cardiac failure congestive
     Dosage: 1 MILLIGRAM, BID
     Route: 048
     Dates: start: 20190829
  4. CLOPIDOGREL [Concomitant]
     Active Substance: CLOPIDOGREL BISULFATE
     Indication: Coronary artery disease
     Dosage: 75 MILLIGRAM, QD
     Route: 048
     Dates: start: 20180814

REACTIONS (1)
  - Death [Fatal]
